FAERS Safety Report 11916397 (Version 2)
Quarter: 2016Q1

REPORT INFORMATION
  Report Type: Report from Study
  Country: CA (occurrence: CA)
  Receive Date: 20160114
  Receipt Date: 20160208
  Transmission Date: 20160526
  Serious: Yes (Hospitalization, Other)
  Sender: FDA-Public Use
  Company Number: CA-AMGEN-CANSL2016002152

PATIENT
  Age: 78 Year
  Sex: Female

DRUGS (11)
  1. RANITIDINE [Concomitant]
     Active Substance: RANITIDINE\RANITIDINE HYDROCHLORIDE
     Dosage: 150 MG, BID
     Route: 048
     Dates: start: 20141125
  2. DICLOFENAC [Concomitant]
     Active Substance: DICLOFENAC
     Dosage: 0ML TO 40 GTTS, QID
     Route: 061
  3. ZOPICLONE [Concomitant]
     Active Substance: ZOPICLONE
     Dosage: 7.5 MG, QHS (PRN FOR 3 MONTHS OF 30 DAYS)
     Route: 048
     Dates: start: 20131113
  4. LOSEC [Concomitant]
     Active Substance: OMEPRAZOLE
     Dosage: UNK UNK, QD
     Route: 065
     Dates: start: 20150630
  5. CALTRATE PLUS                      /01438001/ [Concomitant]
     Active Substance: CALCIUM\CHOLECALCIFEROL\COPPER\MAGNESIUM\MANGANESE\ZINC
     Dosage: UNK UNK, TID
     Route: 065
  6. FLUVIRAL                           /01389801/ [Concomitant]
     Dosage: UNK
     Dates: start: 20091030, end: 20121108
  7. PROLIA [Suspect]
     Active Substance: DENOSUMAB
     Indication: OSTEOPOROSIS POSTMENOPAUSAL
     Dosage: 60 MG, Q6MO
     Route: 058
     Dates: start: 20110513
  8. LEVOTHYROXINE. [Concomitant]
     Active Substance: LEVOTHYROXINE
     Dosage: 75 MG, QD
     Route: 048
     Dates: start: 20131113
  9. TYLENOL WITH CODEINE [Concomitant]
     Active Substance: ACETAMINOPHEN\CODEINE PHOSPHATE
     Dosage: UNK UNK, TID (PRN FOR I WEEK PRN)
     Route: 048
     Dates: start: 20160127
  10. ZITHROMAX [Concomitant]
     Active Substance: AZITHROMYCIN DIHYDRATE
     Dosage: 250 MG, QD
     Route: 048
     Dates: start: 20150311
  11. VENTOLIN [Concomitant]
     Active Substance: ALBUTEROL SULFATE
     Dosage: UNK UNK, AS NECESSARY

REACTIONS (2)
  - Drug ineffective [Not Recovered/Not Resolved]
  - Pneumothorax [Not Recovered/Not Resolved]

NARRATIVE: CASE EVENT DATE: 20151009
